FAERS Safety Report 9948675 (Version 3)
Quarter: 2014Q4

REPORT INFORMATION
  Report Type: Spontaneous
  Country: US (occurrence: None)
  Receive Date: 20140122
  Receipt Date: 20141020
  Transmission Date: 20150529
  Serious: Yes (Other)
  Sender: FDA-Public Use
  Company Number: AEGR000221

PATIENT
  Age: 60 Year
  Sex: Female
  Weight: 90.7 kg

DRUGS (14)
  1. BONIVA [Concomitant]
     Active Substance: IBANDRONATE SODIUM
  2. JUXTAPID [Suspect]
     Active Substance: LOMITAPIDE MESYLATE
     Indication: HYPERCHOLESTEROLAEMIA
     Route: 048
     Dates: start: 201310, end: 201311
  3. ABILIFY [Concomitant]
     Active Substance: ARIPIPRAZOLE
  4. COUMADIN [Concomitant]
     Active Substance: WARFARIN SODIUM
  5. SINGULAIR [Concomitant]
     Active Substance: MONTELUKAST SODIUM
  6. VITAMIN D (ERGOCALCIFEROL) [Concomitant]
     Active Substance: ERGOCALCIFEROL
  7. CRESTOR (ROSUVASTATIN CALCIUM)? [Concomitant]
  8. VITAMIN E (TOCOPHERYL ACETATE) [Concomitant]
  9. CYMBALTA [Concomitant]
     Active Substance: DULOXETINE HYDROCHLORIDE
  10. SUPARTZ (HYALURONATE SODIUM) [Concomitant]
  11. LAMICTAL [Concomitant]
     Active Substance: LAMOTRIGINE
  12. ASPIRIN (ACETYLSALICYLIC ACID) [Concomitant]
     Active Substance: ASPIRIN
  13. NADOLOL (NADOLOL) [Concomitant]
     Active Substance: NADOLOL
  14. OMEGA 3 6 9 (OMEGA 9 FATTY ACIDS, OMEGA-3 FATTY ACIDS, OMEGA-6 FATTY ACIDS) [Concomitant]

REACTIONS (6)
  - Hepatic pain [None]
  - Off label use [None]
  - Diarrhoea [None]
  - Hepatic enzyme increased [None]
  - Faeces discoloured [None]
  - Inappropriate schedule of drug administration [None]

NARRATIVE: CASE EVENT DATE: 2013
